FAERS Safety Report 8424056-4 (Version None)
Quarter: 2012Q2

REPORT INFORMATION
  Report Type: 
  Country: None (occurrence: None)
  Receive Date: 20120608
  Receipt Date: 20110518
  Transmission Date: 20120825
  Serious: No
  Sender: FDA-Public Use
  Company Number: US-ASTRAZENECA-2011SE30553

PATIENT
  Age: 800 Month
  Sex: Female
  Weight: 87.1 kg

DRUGS (1)
  1. PULMICORT FLEXHALER [Suspect]
     Indication: ASTHMA
     Route: 055
     Dates: start: 20110501

REACTIONS (2)
  - INCORRECT DOSE ADMINISTERED [None]
  - DYSPNOEA [None]
